FAERS Safety Report 19482172 (Version 1)
Quarter: 2021Q3

REPORT INFORMATION
  Report Type: Spontaneous
  Country: US (occurrence: US)
  Receive Date: 20210701
  Receipt Date: 20210701
  Transmission Date: 20211014
  Serious: No
  Sender: FDA-Public Use
  Company Number: US-PFIZER INC-2021405906

PATIENT
  Age: 65 Year
  Sex: Female

DRUGS (1)
  1. BRAFTOVI [Suspect]
     Active Substance: ENCORAFENIB
     Dosage: 75 MG, 1X/DAY
     Route: 048

REACTIONS (3)
  - Back pain [Unknown]
  - Muscle spasms [Unknown]
  - Arthralgia [Unknown]
